FAERS Safety Report 13355215 (Version 1)
Quarter: 2017Q1

REPORT INFORMATION
  Report Type: Spontaneous
  Country: US (occurrence: US)
  Receive Date: 20170321
  Receipt Date: 20170321
  Transmission Date: 20170429
  Serious: No
  Sender: FDA-Public Use
  Company Number: US-BAUSCH-BL-2017-002658

PATIENT

DRUGS (3)
  1. CERAVE (MOISTURIZING FACE WASH, CLEANSER UNSPECIFIED) [Suspect]
     Active Substance: COSMETICS
     Indication: PRODUCT USED FOR UNKNOWN INDICATION
     Route: 065
  2. RETIN-A [Suspect]
     Active Substance: TRETINOIN
     Indication: PRODUCT USED FOR UNKNOWN INDICATION
     Route: 065
  3. CERAVE AM FACIAL MOISTURIZING [Suspect]
     Active Substance: HOMOSALATE\OCTINOXATE\OCTOCRYLENE\ZINC OXIDE

REACTIONS (2)
  - Skin wrinkling [Unknown]
  - Acne cystic [Unknown]
